FAERS Safety Report 9258576 (Version 1)
Quarter: 2013Q2

REPORT INFORMATION
  Report Type: Spontaneous
  Country: US (occurrence: None)
  Receive Date: 20130425
  Receipt Date: 20130425
  Transmission Date: 20140414
  Serious: No
  Sender: FDA-Public Use
  Company Number: None

PATIENT
  Sex: Male
  Weight: 90.27 kg

DRUGS (1)
  1. NABUMETONE [Suspect]
     Dosage: 500 MG AM + HS, ORAL
     Dates: start: 20110322, end: 201304

REACTIONS (2)
  - Pain [None]
  - Product substitution issue [None]
